FAERS Safety Report 25806944 (Version 1)
Quarter: 2025Q3

REPORT INFORMATION
  Report Type: Report from Study
  Country: KR (occurrence: KR)
  Receive Date: 20250916
  Receipt Date: 20250916
  Transmission Date: 20251020
  Serious: Yes (Hospitalization)
  Sender: MYLAN
  Company Number: KR-MYLANLABS-2025M1077609

PATIENT
  Age: 57 Year
  Sex: Female
  Weight: 72.8 kg

DRUGS (64)
  1. LYRICA [Suspect]
     Active Substance: PREGABALIN
     Indication: Diabetic neuropathy
     Dosage: 150 MILLIGRAM, BID
     Dates: start: 20250610, end: 20250908
  2. LYRICA [Suspect]
     Active Substance: PREGABALIN
     Dosage: 150 MILLIGRAM, BID
     Dates: start: 20250610, end: 20250908
  3. LYRICA [Suspect]
     Active Substance: PREGABALIN
     Dosage: 150 MILLIGRAM, BID
     Route: 065
     Dates: start: 20250610, end: 20250908
  4. LYRICA [Suspect]
     Active Substance: PREGABALIN
     Dosage: 150 MILLIGRAM, BID
     Route: 065
     Dates: start: 20250610, end: 20250908
  5. LYRICA [Suspect]
     Active Substance: PREGABALIN
     Dosage: 375 MILLIGRAM, BID
     Dates: start: 20250909
  6. LYRICA [Suspect]
     Active Substance: PREGABALIN
     Dosage: 375 MILLIGRAM, BID
     Dates: start: 20250909
  7. LYRICA [Suspect]
     Active Substance: PREGABALIN
     Dosage: 375 MILLIGRAM, BID
     Route: 065
     Dates: start: 20250909
  8. LYRICA [Suspect]
     Active Substance: PREGABALIN
     Dosage: 375 MILLIGRAM, BID
     Route: 065
     Dates: start: 20250909
  9. TRULICITY [Concomitant]
     Active Substance: DULAGLUTIDE
     Indication: Diabetes mellitus
  10. TRULICITY [Concomitant]
     Active Substance: DULAGLUTIDE
     Route: 065
  11. TRULICITY [Concomitant]
     Active Substance: DULAGLUTIDE
     Route: 065
  12. TRULICITY [Concomitant]
     Active Substance: DULAGLUTIDE
  13. Zepitor [Concomitant]
     Indication: Dyslipidaemia
  14. Zepitor [Concomitant]
     Route: 065
  15. Zepitor [Concomitant]
     Route: 065
  16. Zepitor [Concomitant]
  17. GLUCOPHAGE XR [Concomitant]
     Active Substance: METFORMIN HYDROCHLORIDE
     Indication: Diabetes mellitus
  18. GLUCOPHAGE XR [Concomitant]
     Active Substance: METFORMIN HYDROCHLORIDE
     Route: 065
  19. GLUCOPHAGE XR [Concomitant]
     Active Substance: METFORMIN HYDROCHLORIDE
     Route: 065
  20. GLUCOPHAGE XR [Concomitant]
     Active Substance: METFORMIN HYDROCHLORIDE
  21. JARDIANCE [Concomitant]
     Active Substance: EMPAGLIFLOZIN
     Indication: Diabetes mellitus
  22. JARDIANCE [Concomitant]
     Active Substance: EMPAGLIFLOZIN
     Route: 065
  23. JARDIANCE [Concomitant]
     Active Substance: EMPAGLIFLOZIN
     Route: 065
  24. JARDIANCE [Concomitant]
     Active Substance: EMPAGLIFLOZIN
  25. CLONAZEPAM [Concomitant]
     Active Substance: CLONAZEPAM
     Indication: Vertigo CNS origin
  26. CLONAZEPAM [Concomitant]
     Active Substance: CLONAZEPAM
     Route: 065
  27. CLONAZEPAM [Concomitant]
     Active Substance: CLONAZEPAM
     Route: 065
  28. CLONAZEPAM [Concomitant]
     Active Substance: CLONAZEPAM
  29. AGOMELATINE [Concomitant]
     Active Substance: AGOMELATINE
     Indication: Vertigo CNS origin
  30. AGOMELATINE [Concomitant]
     Active Substance: AGOMELATINE
     Route: 065
  31. AGOMELATINE [Concomitant]
     Active Substance: AGOMELATINE
     Route: 065
  32. AGOMELATINE [Concomitant]
     Active Substance: AGOMELATINE
  33. Lexacure [Concomitant]
     Indication: Vertigo CNS origin
  34. Lexacure [Concomitant]
     Route: 065
  35. Lexacure [Concomitant]
     Route: 065
  36. Lexacure [Concomitant]
  37. OXYCONTIN [Concomitant]
     Active Substance: OXYCODONE HYDROCHLORIDE
     Indication: Ocular sarcoidosis
  38. OXYCONTIN [Concomitant]
     Active Substance: OXYCODONE HYDROCHLORIDE
     Route: 065
  39. OXYCONTIN [Concomitant]
     Active Substance: OXYCODONE HYDROCHLORIDE
     Route: 065
  40. OXYCONTIN [Concomitant]
     Active Substance: OXYCODONE HYDROCHLORIDE
  41. OXYCODONE HYDROCHLORIDE [Concomitant]
     Active Substance: OXYCODONE HYDROCHLORIDE
     Indication: Ocular sarcoidosis
  42. OXYCODONE HYDROCHLORIDE [Concomitant]
     Active Substance: OXYCODONE HYDROCHLORIDE
     Route: 065
  43. OXYCODONE HYDROCHLORIDE [Concomitant]
     Active Substance: OXYCODONE HYDROCHLORIDE
     Route: 065
  44. OXYCODONE HYDROCHLORIDE [Concomitant]
     Active Substance: OXYCODONE HYDROCHLORIDE
  45. METHOTREXATE [Concomitant]
     Active Substance: METHOTREXATE
     Indication: Ocular sarcoidosis
  46. METHOTREXATE [Concomitant]
     Active Substance: METHOTREXATE
     Route: 065
  47. METHOTREXATE [Concomitant]
     Active Substance: METHOTREXATE
     Route: 065
  48. METHOTREXATE [Concomitant]
     Active Substance: METHOTREXATE
  49. FOLIC ACID [Concomitant]
     Active Substance: FOLIC ACID
     Indication: Ocular sarcoidosis
  50. FOLIC ACID [Concomitant]
     Active Substance: FOLIC ACID
     Route: 065
  51. FOLIC ACID [Concomitant]
     Active Substance: FOLIC ACID
     Route: 065
  52. FOLIC ACID [Concomitant]
     Active Substance: FOLIC ACID
  53. Solondo [Concomitant]
     Indication: Ocular sarcoidosis
  54. Solondo [Concomitant]
     Route: 065
  55. Solondo [Concomitant]
     Route: 065
  56. Solondo [Concomitant]
  57. Tropifrin [Concomitant]
     Indication: Ocular sarcoidosis
  58. Tropifrin [Concomitant]
     Route: 065
  59. Tropifrin [Concomitant]
     Route: 065
  60. Tropifrin [Concomitant]
  61. COMBIGAN [Concomitant]
     Active Substance: BRIMONIDINE TARTRATE\TIMOLOL MALEATE
     Indication: Ocular sarcoidosis
  62. COMBIGAN [Concomitant]
     Active Substance: BRIMONIDINE TARTRATE\TIMOLOL MALEATE
     Route: 065
  63. COMBIGAN [Concomitant]
     Active Substance: BRIMONIDINE TARTRATE\TIMOLOL MALEATE
     Route: 065
  64. COMBIGAN [Concomitant]
     Active Substance: BRIMONIDINE TARTRATE\TIMOLOL MALEATE

REACTIONS (1)
  - Radius fracture [Recovered/Resolved]

NARRATIVE: CASE EVENT DATE: 20250825
